FAERS Safety Report 10803173 (Version 2)
Quarter: 2015Q3

REPORT INFORMATION
  Report Type: Spontaneous
  Country: US (occurrence: US)
  Receive Date: 20150217
  Receipt Date: 20150810
  Transmission Date: 20151125
  Serious: Yes (Hospitalization, Other)
  Sender: FDA-Public Use
  Company Number: US-BAYER-2015-022821

PATIENT
  Age: 62 Year
  Sex: Male

DRUGS (26)
  1. XOFIGO [Suspect]
     Active Substance: RADIUM RA-223 DICHLORIDE
     Indication: PROSTATE CANCER METASTATIC
     Dosage: UNK
  2. MAALOX ANTACID [Concomitant]
     Active Substance: ALUMINUM HYDROXIDE\DIMETHICONE\MAGNESIUM HYDROXIDE
     Indication: DYSPEPSIA
     Dosage: 30ML Q4HR, PRN
     Route: 048
  3. INSULIN [Concomitant]
     Active Substance: INSULIN NOS
     Dosage: 2-12 UNITS
     Route: 058
  4. XOFIGO [Suspect]
     Active Substance: RADIUM RA-223 DICHLORIDE
     Indication: PROSTATE CANCER METASTATIC
     Dosage: UNK
     Dates: start: 201412, end: 201412
  5. VALIUM [Concomitant]
     Active Substance: DIAZEPAM
     Indication: MUSCLE SPASMS
     Dosage: 1 DF, PRN
     Route: 048
  6. ATIVAN [Concomitant]
     Active Substance: LORAZEPAM
     Indication: ANXIETY
     Dosage: 1 MG, QID
     Route: 048
  7. OXYCONTIN [Concomitant]
     Active Substance: OXYCODONE HYDROCHLORIDE
     Dosage: 20 MG, BID
     Route: 048
  8. LUPRON [Concomitant]
     Active Substance: LEUPROLIDE ACETATE
     Dosage: VERY SIX MONTHS
     Route: 058
  9. ZOFRAN [Concomitant]
     Active Substance: ONDANSETRON HYDROCHLORIDE
     Indication: NAUSEA
     Dosage: 8MG Q8HR PRN
     Route: 048
  10. DECADRON [Concomitant]
     Active Substance: DEXAMETHASONE
     Dosage: 4 MG, BID
     Route: 048
  11. OXYCODONE [Concomitant]
     Active Substance: OXYCODONE
     Indication: PAIN
     Dosage: 5-10MG, PRN
     Route: 048
  12. IBUPROFEN. [Concomitant]
     Active Substance: IBUPROFEN
     Indication: BACK PAIN
     Dosage: UNK
     Route: 048
     Dates: start: 2011
  13. XOFIGO [Suspect]
     Active Substance: RADIUM RA-223 DICHLORIDE
     Indication: PROSTATE CANCER METASTATIC
     Dosage: UNK
     Dates: start: 201501, end: 201501
  14. XOFIGO [Suspect]
     Active Substance: RADIUM RA-223 DICHLORIDE
     Indication: PROSTATE CANCER METASTATIC
     Dosage: UNK
  15. NARCAN [Concomitant]
     Active Substance: NALOXONE HYDROCHLORIDE
     Dosage: 0.1MG, PRN
     Route: 042
  16. ZOMETA [Concomitant]
     Active Substance: ZOLEDRONIC ACID
     Dosage: UNK, OM
     Route: 042
  17. MULTIVITAMINS [Concomitant]
     Active Substance: VITAMINS
     Dosage: 1 DF, QD
     Route: 048
  18. SENOKOT [Concomitant]
     Active Substance: SENNOSIDES
     Indication: CONSTIPATION
     Dosage: 2 TAB PRN
     Route: 048
  19. ZOFRAN [Concomitant]
     Active Substance: ONDANSETRON HYDROCHLORIDE
     Indication: VOMITING
     Dosage: 4MG Q8HR PRN
     Route: 042
  20. AMBIEN [Concomitant]
     Active Substance: ZOLPIDEM TARTRATE
     Indication: INSOMNIA
     Dosage: 1 DF QHS PRN
     Route: 048
  21. AMPHOJEL [Concomitant]
     Active Substance: ALUMINUM HYDROXIDE
     Indication: DYSPEPSIA
     Dosage: 320MG/5ML QID PRN
     Route: 048
  22. IBUPROFEN. [Concomitant]
     Active Substance: IBUPROFEN
     Indication: BACK PAIN
     Dosage: 800MG Q8HR, PRN
     Route: 048
  23. XTANDI [Concomitant]
     Active Substance: ENZALUTAMIDE
     Dosage: DAILY DOSE 160 MG
     Route: 048
  24. XOFIGO [Suspect]
     Active Substance: RADIUM RA-223 DICHLORIDE
     Indication: PROSTATE CANCER METASTATIC
     Dosage: UNK
     Dates: start: 20150507, end: 20150507
  25. TYLENOL [Concomitant]
     Active Substance: ACETAMINOPHEN
     Dosage: DAILY DOSE 1000 MG
     Route: 048
  26. PEPCID [Concomitant]
     Active Substance: FAMOTIDINE
     Dosage: 20 MG, BID
     Route: 048

REACTIONS (4)
  - Compression fracture [None]
  - Fatigue [None]
  - Spinal cord compression [None]
  - Erectile dysfunction [None]

NARRATIVE: CASE EVENT DATE: 20150121
